FAERS Safety Report 6436389-1 (Version None)
Quarter: 2009Q4

REPORT INFORMATION
  Report Type: 
  Country: None (occurrence: None)
  Receive Date: 20091111
  Receipt Date: 20091104
  Transmission Date: 20100525
  Serious: Yes (Other)
  Sender: FDA-Public Use
  Company Number: PHHO2009IT12720

PATIENT
  Sex: Female

DRUGS (2)
  1. CGS 20267 T30748+ [Suspect]
     Indication: BONE DENSITY DECREASED
     Dosage: UNK
     Route: 048
     Dates: start: 20060801, end: 20060815
  2. ZOLEDRONATE T29581+ [Suspect]
     Indication: BONE DENSITY DECREASED
     Dosage: UNK
     Route: 042
     Dates: start: 20060801, end: 20060815

REACTIONS (2)
  - PAIN [None]
  - PERIPHERAL SENSORY NEUROPATHY [None]
